FAERS Safety Report 25152370 (Version 2)
Quarter: 2025Q3

REPORT INFORMATION
  Report Type: Spontaneous
  Country: CA (occurrence: CA)
  Receive Date: 20250402
  Receipt Date: 20250810
  Transmission Date: 20251020
  Serious: Yes (Other)
  Sender: ALEXION PHARMACEUTICALS
  Company Number: CA-HALEON-2234745

PATIENT
  Age: 41 Year
  Sex: Female

DRUGS (130)
  1. NEXIUM 24HR [Suspect]
     Active Substance: ESOMEPRAZOLE MAGNESIUM
     Indication: Product used for unknown indication
     Route: 065
  2. ZESTRIL [Suspect]
     Active Substance: LISINOPRIL
     Indication: Product used for unknown indication
     Dosage: DURATION: 54.0 DAYS
  3. ZESTRIL [Suspect]
     Active Substance: LISINOPRIL
  4. ZESTRIL [Suspect]
     Active Substance: LISINOPRIL
     Route: 065
  5. ACETAMINOPHEN [Suspect]
     Active Substance: ACETAMINOPHEN
     Indication: Product used for unknown indication
     Route: 065
  6. CLOTRIMAZOLE [Suspect]
     Active Substance: CLOTRIMAZOLE
     Indication: Product used for unknown indication
     Route: 065
  7. CODEINE [Suspect]
     Active Substance: CODEINE
     Indication: Migraine
     Route: 065
  8. DEXAMETHASONE [Suspect]
     Active Substance: DEXAMETHASONE
     Indication: Migraine
     Route: 065
  9. DULOXETINE HYDROCHLORIDE [Suspect]
     Active Substance: DULOXETINE HYDROCHLORIDE
     Indication: Migraine
     Route: 065
  10. ESCITALOPRAM OXALATE [Suspect]
     Active Substance: ESCITALOPRAM OXALATE
     Indication: Product used for unknown indication
     Route: 065
  11. HYDROMORPHONE [Suspect]
     Active Substance: HYDROMORPHONE
     Indication: Migraine
     Route: 065
  12. HYDROMORPHONE [Suspect]
     Active Substance: HYDROMORPHONE
     Route: 065
  13. HYDROMORPHONE [Suspect]
     Active Substance: HYDROMORPHONE
     Route: 065
  14. HYDROMORPHONE [Suspect]
     Active Substance: HYDROMORPHONE
     Route: 065
  15. HYDROMORPHONE [Suspect]
     Active Substance: HYDROMORPHONE
     Route: 065
  16. HYDROMORPHONE [Suspect]
     Active Substance: HYDROMORPHONE
     Route: 065
  17. HYDROMORPHONE [Suspect]
     Active Substance: HYDROMORPHONE
     Route: 065
  18. HYDROMORPHONE [Suspect]
     Active Substance: HYDROMORPHONE
     Route: 065
  19. HYDROMORPHONE [Suspect]
     Active Substance: HYDROMORPHONE
     Route: 065
  20. HYDROMORPHONE [Suspect]
     Active Substance: HYDROMORPHONE
     Route: 065
  21. HYDROMORPHONE [Suspect]
     Active Substance: HYDROMORPHONE
     Route: 065
  22. LANSOPRAZOLE [Suspect]
     Active Substance: LANSOPRAZOLE
     Indication: Migraine
     Route: 065
  23. MAXALT [Suspect]
     Active Substance: RIZATRIPTAN BENZOATE
     Indication: Migraine
     Route: 065
  24. MAXALT [Suspect]
     Active Substance: RIZATRIPTAN BENZOATE
     Route: 065
  25. METOCLOPRAMIDE [Suspect]
     Active Substance: METOCLOPRAMIDE
     Indication: Migraine
     Route: 065
  26. MOMETASONE FUROATE [Suspect]
     Active Substance: MOMETASONE FUROATE
     Indication: Product used for unknown indication
     Route: 065
  27. MOMETASONE FUROATE [Suspect]
     Active Substance: MOMETASONE FUROATE
     Route: 065
  28. PREDNISOLONE [Suspect]
     Active Substance: PREDNISOLONE
     Indication: Product used for unknown indication
     Route: 065
  29. PREDNISOLONE [Suspect]
     Active Substance: PREDNISOLONE
     Route: 065
  30. PROPRANOLOL [Suspect]
     Active Substance: PROPRANOLOL HYDROCHLORIDE
     Indication: Migraine
     Route: 065
  31. RABEPRAZOLE [Suspect]
     Active Substance: RABEPRAZOLE
     Indication: Migraine
     Route: 065
  32. RABEPRAZOLE [Suspect]
     Active Substance: RABEPRAZOLE
     Route: 065
  33. RABEPRAZOLE [Suspect]
     Active Substance: RABEPRAZOLE
     Route: 065
  34. RABEPRAZOLE [Suspect]
     Active Substance: RABEPRAZOLE
     Route: 065
  35. RABEPRAZOLE [Suspect]
     Active Substance: RABEPRAZOLE
     Route: 065
  36. RABEPRAZOLE [Suspect]
     Active Substance: RABEPRAZOLE
     Route: 065
  37. RABEPRAZOLE [Suspect]
     Active Substance: RABEPRAZOLE
     Route: 065
  38. RABEPRAZOLE [Suspect]
     Active Substance: RABEPRAZOLE
     Route: 065
  39. RABEPRAZOLE [Suspect]
     Active Substance: RABEPRAZOLE
     Route: 065
  40. RABEPRAZOLE [Suspect]
     Active Substance: RABEPRAZOLE
     Route: 065
  41. RABEPRAZOLE [Suspect]
     Active Substance: RABEPRAZOLE
     Route: 065
  42. RABEPRAZOLE [Suspect]
     Active Substance: RABEPRAZOLE
     Route: 065
  43. RABEPRAZOLE [Suspect]
     Active Substance: RABEPRAZOLE
     Route: 065
  44. RABEPRAZOLE [Suspect]
     Active Substance: RABEPRAZOLE
     Route: 065
  45. RABEPRAZOLE [Suspect]
     Active Substance: RABEPRAZOLE
     Route: 065
  46. RABEPRAZOLE [Suspect]
     Active Substance: RABEPRAZOLE
     Route: 065
  47. RABEPRAZOLE [Suspect]
     Active Substance: RABEPRAZOLE
     Route: 065
  48. RABEPRAZOLE [Suspect]
     Active Substance: RABEPRAZOLE
     Route: 065
  49. RABEPRAZOLE [Suspect]
     Active Substance: RABEPRAZOLE
     Route: 065
  50. RABEPRAZOLE [Suspect]
     Active Substance: RABEPRAZOLE
     Route: 065
  51. ALBUTEROL [Suspect]
     Active Substance: ALBUTEROL
     Indication: Product used for unknown indication
     Route: 065
  52. SERTRALINE HYDROCHLORIDE [Suspect]
     Active Substance: SERTRALINE HYDROCHLORIDE
     Indication: Migraine
     Route: 065
  53. ZOPICLONE [Suspect]
     Active Substance: ZOPICLONE
     Indication: Migraine
     Dosage: DURATION : 56.0 DAYS
     Route: 065
  54. ZOPICLONE [Suspect]
     Active Substance: ZOPICLONE
     Dosage: DURATION : 1.0 DAYS
     Route: 065
  55. ZOPICLONE [Suspect]
     Active Substance: ZOPICLONE
     Dosage: DURATION : 94.0 DAYS
     Route: 065
  56. ZOPICLONE [Suspect]
     Active Substance: ZOPICLONE
     Dosage: DURATION : 52.0 DAYS
     Route: 065
  57. ZOPICLONE [Suspect]
     Active Substance: ZOPICLONE
     Dosage: DURATION : 53.0 DAYS
     Route: 065
  58. ZOPICLONE [Suspect]
     Active Substance: ZOPICLONE
     Dosage: DURATION : 73.0 DAYS
     Route: 065
  59. ZOPICLONE [Suspect]
     Active Substance: ZOPICLONE
     Dosage: DURATION : 59.0 DAYS
     Route: 065
  60. ZOPICLONE [Suspect]
     Active Substance: ZOPICLONE
     Dosage: DURATION : 47.0 DAYS
     Route: 065
  61. ZOPICLONE [Suspect]
     Active Substance: ZOPICLONE
     Dosage: DURATION : 37.0 DAYS
     Route: 065
  62. ZOPICLONE [Suspect]
     Active Substance: ZOPICLONE
     Dosage: DURATION : 45.0 DAYS
     Route: 065
  63. ZOPICLONE [Suspect]
     Active Substance: ZOPICLONE
     Dosage: DURATION : 58.0 DAYS
     Route: 065
  64. ZOPICLONE [Suspect]
     Active Substance: ZOPICLONE
     Dosage: DURATION : 55.0 DAYS
     Route: 065
  65. ZOPICLONE [Suspect]
     Active Substance: ZOPICLONE
     Dosage: DURATION : 141.0 DAYS
     Route: 065
  66. ZOPICLONE [Suspect]
     Active Substance: ZOPICLONE
     Dosage: DURATION : 62.0 DAYS
     Route: 065
  67. ZOPICLONE [Suspect]
     Active Substance: ZOPICLONE
     Dosage: DURATION : 67.0 DAYS
     Route: 065
  68. ZOPICLONE [Suspect]
     Active Substance: ZOPICLONE
     Dosage: DURATION : 83.0 DAYS
     Route: 065
  69. ACETAMINOPHEN [Suspect]
     Active Substance: ACETAMINOPHEN
     Indication: Product used for unknown indication
     Route: 065
  70. AMOXICILLIN TRIHYDRATE [Suspect]
     Active Substance: AMOXICILLIN
     Indication: Product used for unknown indication
     Route: 065
  71. AZITHROMYCIN [Suspect]
     Active Substance: AZITHROMYCIN
     Indication: Migraine
     Route: 065
  72. BOTULINUM TOXIN TYPE A [Suspect]
     Active Substance: BOTULINUM TOXIN TYPE A
     Indication: Product used for unknown indication
     Route: 065
  73. BOTULINUM TOXIN TYPE A [Suspect]
     Active Substance: BOTULINUM TOXIN TYPE A
     Route: 065
  74. BOTULINUM TOXIN TYPE A [Suspect]
     Active Substance: BOTULINUM TOXIN TYPE A
     Route: 065
  75. BOTULINUM TOXIN TYPE A [Suspect]
     Active Substance: BOTULINUM TOXIN TYPE A
     Route: 065
  76. BOTULINUM TOXIN TYPE A [Suspect]
     Active Substance: BOTULINUM TOXIN TYPE A
     Route: 065
  77. CIPROFLOXACIN LACTATE [Suspect]
     Active Substance: CIPROFLOXACIN LACTATE
     Indication: Migraine
     Route: 065
  78. CIPROFLOXACIN LACTATE [Suspect]
     Active Substance: CIPROFLOXACIN LACTATE
     Dosage: DURATION: 152.0 DAYS
     Route: 065
  79. CIPROFLOXACIN LACTATE [Suspect]
     Active Substance: CIPROFLOXACIN LACTATE
     Route: 065
  80. CLARITHROMYCIN [Suspect]
     Active Substance: CLARITHROMYCIN
     Indication: Product used for unknown indication
     Route: 065
  81. TOPIRAMATE [Suspect]
     Active Substance: TOPIRAMATE
     Indication: Migraine
     Route: 065
  82. CLARITHROMYCIN [Suspect]
     Active Substance: CLARITHROMYCIN
     Route: 065
  83. INDOMETHACIN [Suspect]
     Active Substance: INDOMETHACIN
     Indication: Migraine
  84. INDOMETHACIN [Suspect]
     Active Substance: INDOMETHACIN
  85. INDOMETHACIN [Suspect]
     Active Substance: INDOMETHACIN
  86. INDOMETHACIN [Suspect]
     Active Substance: INDOMETHACIN
  87. INDOMETHACIN [Suspect]
     Active Substance: INDOMETHACIN
  88. INDOMETHACIN [Suspect]
     Active Substance: INDOMETHACIN
  89. INDOMETHACIN [Suspect]
     Active Substance: INDOMETHACIN
  90. INDOMETHACIN [Suspect]
     Active Substance: INDOMETHACIN
  91. INDOMETHACIN [Suspect]
     Active Substance: INDOMETHACIN
  92. INDOMETHACIN [Suspect]
     Active Substance: INDOMETHACIN
  93. INDOMETHACIN [Suspect]
     Active Substance: INDOMETHACIN
  94. INDOMETHACIN [Suspect]
     Active Substance: INDOMETHACIN
  95. INDOMETHACIN [Suspect]
     Active Substance: INDOMETHACIN
  96. INDOMETHACIN [Suspect]
     Active Substance: INDOMETHACIN
  97. INDOMETHACIN [Suspect]
     Active Substance: INDOMETHACIN
  98. INDOMETHACIN [Suspect]
     Active Substance: INDOMETHACIN
  99. INDOMETHACIN [Suspect]
     Active Substance: INDOMETHACIN
  100. INDOMETHACIN [Suspect]
     Active Substance: INDOMETHACIN
  101. INDOMETHACIN [Suspect]
     Active Substance: INDOMETHACIN
  102. INDOMETHACIN [Suspect]
     Active Substance: INDOMETHACIN
  103. INDOMETHACIN [Suspect]
     Active Substance: INDOMETHACIN
  104. INDOMETHACIN [Suspect]
     Active Substance: INDOMETHACIN
  105. INDOMETHACIN [Suspect]
     Active Substance: INDOMETHACIN
  106. INDOMETHACIN [Suspect]
     Active Substance: INDOMETHACIN
  107. INDOMETHACIN [Suspect]
     Active Substance: INDOMETHACIN
  108. SUMATRIPTAN SUCCINATE [Suspect]
     Active Substance: SUMATRIPTAN SUCCINATE
     Indication: Migraine
     Route: 065
  109. SCOPOLAMINE HYDROBROMIDE [Suspect]
     Active Substance: SCOPOLAMINE HYDROBROMIDE
     Indication: Migraine
     Route: 065
  110. TRIMETHOPRIM [Suspect]
     Active Substance: TRIMETHOPRIM
     Indication: Product used for unknown indication
     Route: 065
  111. VENLAFAXINE HYDROCHLORIDE [Suspect]
     Active Substance: VENLAFAXINE HYDROCHLORIDE
     Indication: Product used for unknown indication
     Route: 065
  112. ZOLMITRIPTAN [Suspect]
     Active Substance: ZOLMITRIPTAN
     Indication: Product used for unknown indication
  113. MAXALT [Suspect]
     Active Substance: RIZATRIPTAN BENZOATE
     Indication: Migraine
     Route: 065
  114. BOTULINUM TOXIN TYPE A [Suspect]
     Active Substance: BOTULINUM TOXIN TYPE A
     Indication: Product used for unknown indication
     Route: 065
  115. NAPROXEN [Concomitant]
     Active Substance: NAPROXEN
     Indication: Product used for unknown indication
     Route: 065
  116. ZOPICLONE [Concomitant]
     Active Substance: ZOPICLONE
     Indication: Migraine
     Dosage: 1 DOSAGE FORM, QD (DURATION: 61.0 DAYS)
     Route: 065
  117. MORPHINE SULFATE [Concomitant]
     Active Substance: MORPHINE SULFATE
     Indication: Product used for unknown indication
     Route: 065
  118. CYMBALTA [Concomitant]
     Active Substance: DULOXETINE HYDROCHLORIDE
     Indication: Product used for unknown indication
     Route: 065
  119. DANAZOL [Concomitant]
     Active Substance: DANAZOL
     Indication: Product used for unknown indication
     Route: 065
  120. CEFUROXIME SODIUM [Concomitant]
     Active Substance: CEFUROXIME SODIUM
     Indication: Product used for unknown indication
     Route: 065
  121. SULFADIAZINE\TRIMETHOPRIM [Concomitant]
     Active Substance: SULFADIAZINE\TRIMETHOPRIM
     Indication: Product used for unknown indication
     Route: 065
  122. METOCLOPRAMIDE [Concomitant]
     Active Substance: METOCLOPRAMIDE
     Indication: Product used for unknown indication
     Route: 065
  123. CEPHALEXIN [Concomitant]
     Active Substance: CEPHALEXIN
     Indication: Product used for unknown indication
     Route: 065
  124. FERROUS FUMARATE [Concomitant]
     Active Substance: FERROUS FUMARATE
     Indication: Product used for unknown indication
     Route: 065
  125. FROVATRIPTAN [Concomitant]
     Active Substance: FROVATRIPTAN
     Indication: Product used for unknown indication
     Route: 065
  126. OSELTAMIVIR PHOSPHATE [Concomitant]
     Active Substance: OSELTAMIVIR PHOSPHATE
     Indication: Product used for unknown indication
     Route: 065
  127. FLUTICASONE PROPIONATE [Concomitant]
     Active Substance: FLUTICASONE PROPIONATE
     Indication: Product used for unknown indication
     Route: 065
  128. METRONIDAZOLE [Concomitant]
     Active Substance: METRONIDAZOLE
     Indication: Product used for unknown indication
     Route: 065
  129. POLYETHYLENE GLYCOL 3350 [Concomitant]
     Active Substance: POLYETHYLENE GLYCOL 3350
     Indication: Product used for unknown indication
     Route: 065
  130. MACROBID [Concomitant]
     Active Substance: NITROFURANTOIN\NITROFURANTOIN MONOHYDRATE
     Indication: Product used for unknown indication
     Route: 065

REACTIONS (8)
  - Angioedema [Unknown]
  - Hypersensitivity [Unknown]
  - Drug intolerance [Unknown]
  - Off label use [Unknown]
  - Dysphonia [Unknown]
  - Swelling face [Unknown]
  - Headache [Unknown]
  - Swollen tongue [Unknown]
